FAERS Safety Report 24349927 (Version 1)
Quarter: 2024Q3

REPORT INFORMATION
  Report Type: Spontaneous
  Country: CN (occurrence: CN)
  Receive Date: 20240923
  Receipt Date: 20240923
  Transmission Date: 20241016
  Serious: No
  Sender: ROCHE
  Company Number: CN-ROCHE-3496755

PATIENT
  Age: 48 Year
  Sex: Female
  Weight: 46.0 kg

DRUGS (6)
  1. HERCEPTIN [Suspect]
     Active Substance: TRASTUZUMAB
     Indication: Radical mastectomy
     Route: 041
     Dates: start: 20240115
  2. HERCEPTIN [Suspect]
     Active Substance: TRASTUZUMAB
     Indication: Chemotherapy
  3. PERJETA [Suspect]
     Active Substance: PERTUZUMAB
     Indication: Radical mastectomy
     Route: 065
     Dates: start: 20240115
  4. PERJETA [Suspect]
     Active Substance: PERTUZUMAB
     Indication: Chemotherapy
  5. DOCETAXEL [Suspect]
     Active Substance: DOCETAXEL\DOCETAXEL ANHYDROUS
     Indication: Radical mastectomy
     Route: 041
     Dates: start: 20240115
  6. DOCETAXEL [Suspect]
     Active Substance: DOCETAXEL\DOCETAXEL ANHYDROUS
     Indication: Chemotherapy

REACTIONS (1)
  - Nausea [Unknown]

NARRATIVE: CASE EVENT DATE: 20240115
